FAERS Safety Report 19494213 (Version 2)
Quarter: 2021Q3

REPORT INFORMATION
  Report Type: Spontaneous
  Country: US (occurrence: US)
  Receive Date: 20210705
  Receipt Date: 20210709
  Transmission Date: 20211014
  Serious: Yes (Hospitalization, Other)
  Sender: FDA-Public Use
  Company Number: US-PFIZER INC-2021765546

PATIENT
  Age: 63 Year
  Sex: Female

DRUGS (3)
  1. XELJANZ [Suspect]
     Active Substance: TOFACITINIB CITRATE
     Indication: RHEUMATOID ARTHRITIS
     Dosage: 5 MG, 2X/DAY
     Route: 048
     Dates: start: 202104
  2. ENTRESTO [Concomitant]
     Active Substance: SACUBITRIL\VALSARTAN
     Dosage: UNK
  3. CELEBREX [Concomitant]
     Active Substance: CELECOXIB
     Dosage: UNK

REACTIONS (1)
  - Myocarditis [Unknown]

NARRATIVE: CASE EVENT DATE: 20210519
